FAERS Safety Report 10215943 (Version 1)
Quarter: 2014Q2

REPORT INFORMATION
  Report Type: Spontaneous
  Country: US (occurrence: None)
  Receive Date: 20140602
  Receipt Date: 20140602
  Transmission Date: 20141212
  Serious: Yes (Other)
  Sender: FDA-Public Use
  Company Number: 2014AP003141

PATIENT
  Sex: Female

DRUGS (6)
  1. ALENDRONATE SODIUM (ALENDRONATE) TABLET [Suspect]
     Indication: OSTEOPOROSIS
     Dates: start: 2004, end: 2010
  2. ALENDRONATE SODIUM (ALENDRONATE) TABLET [Suspect]
     Indication: OSTEOPENIA
     Dates: start: 2004, end: 2010
  3. FOSAMAX (ALENDRONATE SODIUM) [Suspect]
     Indication: OSTEOPOROSIS
     Dates: start: 2004, end: 2010
  4. FOSAMAX (ALENDRONATE SODIUM) [Suspect]
     Indication: OSTEOPENIA
     Dates: start: 2004, end: 2010
  5. BONIVA (IBANDRONATE SODIUM) [Suspect]
     Indication: OSTEOPOROSIS
     Dates: start: 2004, end: 2010
  6. BONIVA (IBANDRONATE SODIUM) [Suspect]
     Indication: OSTEOPENIA
     Dates: start: 2004, end: 2010

REACTIONS (6)
  - Femur fracture [None]
  - Pain [None]
  - Injury [None]
  - Bone disorder [None]
  - Economic problem [None]
  - Physical disability [None]
